FAERS Safety Report 6619196-6 (Version None)
Quarter: 2010Q1

REPORT INFORMATION
  Report Type: 
  Country: None (occurrence: None)
  Receive Date: 20100305
  Receipt Date: 20100305
  Transmission Date: 20100710
  Serious: No
  Sender: FDA-Public Use
  Company Number: None

PATIENT
  Age: 61 Year
  Sex: Female
  Weight: 45.3597 kg

DRUGS (1)
  1. ST. JOSEPH ASPIRIN 81MG. [Suspect]
     Indication: COLONIC POLYP
     Dosage: 1 TABLET DAILY PO
     Route: 048

REACTIONS (3)
  - ABDOMINAL PAIN UPPER [None]
  - NAUSEA [None]
  - PRODUCT QUALITY ISSUE [None]
